FAERS Safety Report 7915457-9 (Version None)
Quarter: 2011Q4

REPORT INFORMATION
  Report Type: 
  Country: None (occurrence: None)
  Receive Date: 20111115
  Receipt Date: 20111102
  Transmission Date: 20120403
  Serious: Yes (Hospitalization)
  Sender: FDA-Public Use
  Company Number: US-ELI_LILLY_AND_COMPANY-US201111001993

PATIENT
  Sex: Male

DRUGS (3)
  1. CYMBALTA [Suspect]
     Dosage: 30 MG, UNKNOWN
  2. ZYPREXA [Suspect]
     Dosage: 5 MG, UNKNOWN
  3. TRAZODONE HCL [Concomitant]

REACTIONS (2)
  - HOSPITALISATION [None]
  - RASH [None]
